FAERS Safety Report 8398842-3 (Version None)
Quarter: 2012Q2

REPORT INFORMATION
  Report Type: 
  Country: None (occurrence: None)
  Receive Date: 20120524
  Receipt Date: 20120516
  Transmission Date: 20120825
  Serious: Yes (Hospitalization, Other)
  Sender: FDA-Public Use
  Company Number: NSR_00555_2012

PATIENT
  Age: 35 Year
  Sex: Male

DRUGS (2)
  1. PROPRANOLOL [Suspect]
     Indication: PRODUCT USED FOR UNKNOWN INDICATION
     Dosage: (DF)
  2. CHLORPHENIRAMINE MALEATE [Suspect]
     Indication: PRODUCT USED FOR UNKNOWN INDICATION
     Dosage: (DF)

REACTIONS (10)
  - CHEST PAIN [None]
  - VENTRICULAR TACHYCARDIA [None]
  - VENTRICULAR FIBRILLATION [None]
  - BRUGADA SYNDROME [None]
  - ALTERED STATE OF CONSCIOUSNESS [None]
  - TORSADE DE POINTES [None]
  - BUNDLE BRANCH BLOCK RIGHT [None]
  - TACHYCARDIA [None]
  - CARDIAC ARREST [None]
  - PALPITATIONS [None]
